FAERS Safety Report 19187125 (Version 4)
Quarter: 2023Q2

REPORT INFORMATION
  Report Type: Other
  Country: CA (occurrence: None)
  Receive Date: 20210428
  Receipt Date: 20230630
  Transmission Date: 20230721
  Serious: Yes (Hospitalization, Other)
  Sender: FDA-Public Use
  Company Number: CA-ROCHE-2818571

PATIENT
  Age: 36 Year
  Sex: Female

DRUGS (2)
  1. OCREVUS [Suspect]
     Active Substance: OCRELIZUMAB
     Indication: Relapsing-remitting multiple sclerosis
     Dosage: 300 MG AT DAY 0 AND 14, THEN 600 MG EVERY 6 MONTH
     Route: 042
     Dates: start: 20191126
  2. MODAFINIL [Concomitant]
     Active Substance: MODAFINIL

REACTIONS (7)
  - Herpes zoster [Not Recovered/Not Resolved]
  - Urethral disorder [Unknown]
  - Stress urinary incontinence [Not Recovered/Not Resolved]
  - Depression [Not Recovered/Not Resolved]
  - Muscle spasticity [Unknown]
  - COVID-19 [Unknown]
  - Neuralgia [Unknown]

NARRATIVE: CASE EVENT DATE: 20210201
